FAERS Safety Report 6554743-4 (Version None)
Quarter: 2010Q1

REPORT INFORMATION
  Report Type: 
  Country: None (occurrence: None)
  Receive Date: 20100127
  Receipt Date: 20091207
  Transmission Date: 20100710
  Serious: Yes (Hospitalization)
  Sender: FDA-Public Use
  Company Number: FR-SANOFI-AVENTIS-2009SA011331

PATIENT
  Age: 58 Year

DRUGS (6)
  1. OXALIPLATIN [Suspect]
     Indication: COLON CANCER
     Route: 041
     Dates: start: 20071112, end: 20071112
  2. OXALIPLATIN [Suspect]
     Route: 041
     Dates: start: 20071210, end: 20071210
  3. FLUOROURACIL [Suspect]
     Indication: COLON CANCER
     Route: 042
     Dates: start: 20071112, end: 20071113
  4. FLUOROURACIL [Suspect]
     Route: 042
     Dates: start: 20071210, end: 20071211
  5. FOLINIC ACID [Suspect]
     Indication: COLON CANCER
     Route: 042
     Dates: start: 20071112, end: 20071113
  6. FOLINIC ACID [Suspect]
     Route: 042
     Dates: start: 20071210, end: 20071211

REACTIONS (1)
  - OESOPHAGITIS ULCERATIVE [None]
